FAERS Safety Report 9779407 (Version 5)
Quarter: 2015Q2

REPORT INFORMATION
  Report Type: Spontaneous
  Country: JP (occurrence: JP)
  Receive Date: 20131223
  Receipt Date: 20150430
  Transmission Date: 20150821
  Serious: Yes (Other)
  Sender: FDA-Public Use
  Company Number: JP-GILEAD-2013-0086055

PATIENT
  Age: 70 Year
  Sex: Female

DRUGS (7)
  1. ZEFIX [Suspect]
     Active Substance: LAMIVUDINE
     Indication: HEPATIC CIRRHOSIS
     Dosage: 100 MG, QD
     Route: 048
  2. HEPSERA [Suspect]
     Active Substance: ADEFOVIR DIPIVOXIL
     Dosage: 20 MG, Q1WK
     Route: 048
  3. HEPSERA [Suspect]
     Active Substance: ADEFOVIR DIPIVOXIL
     Dosage: 10 MG, QD
     Route: 048
     Dates: start: 2005
  4. HEPSERA [Suspect]
     Active Substance: ADEFOVIR DIPIVOXIL
     Dosage: 10 MG, QOD
     Route: 048
     Dates: start: 2010
  5. ZEFIX [Suspect]
     Active Substance: LAMIVUDINE
     Dosage: 100 MG, QOD
     Route: 048
  6. PHOSPHATE                          /01053101/ [Concomitant]
     Dosage: 300 MG, QD
     Route: 048
     Dates: start: 2013
  7. HEPSERA [Suspect]
     Active Substance: ADEFOVIR DIPIVOXIL
     Indication: HEPATIC CIRRHOSIS
     Dosage: 10 MG, Q2WK
     Route: 048
     Dates: start: 2013

REACTIONS (16)
  - Osteoporosis [Unknown]
  - Acquired aminoaciduria [Unknown]
  - Osteomalacia [Unknown]
  - Intervertebral disc protrusion [Unknown]
  - Ulna fracture [Recovered/Resolved]
  - Hyperphosphatasaemia [Unknown]
  - Platelet count decreased [Unknown]
  - Fanconi syndrome acquired [Unknown]
  - Musculoskeletal pain [Recovering/Resolving]
  - Glucose urine present [Unknown]
  - Hypoalbuminaemia [Unknown]
  - Urine uric acid increased [Unknown]
  - Hypophosphataemia [Recovered/Resolved]
  - Drug tolerance [Unknown]
  - Metabolic acidosis [Unknown]
  - Back pain [Recovering/Resolving]

NARRATIVE: CASE EVENT DATE: 201005
